FAERS Safety Report 18033411 (Version 3)
Quarter: 2020Q4

REPORT INFORMATION
  Report Type: Spontaneous
  Country: SI (occurrence: SI)
  Receive Date: 20200716
  Receipt Date: 20201002
  Transmission Date: 20210113
  Serious: Yes (Other)
  Sender: FDA-Public Use
  Company Number: SI-BAYER-2020-136729

PATIENT
  Age: 61 Year
  Sex: Male

DRUGS (8)
  1. JIVI [Suspect]
     Active Substance: DAMOCTOCOG ALFA PEGOL
     Indication: FACTOR VIII DEFICIENCY
     Dosage: 3000 U, BIW
     Route: 042
     Dates: start: 20200606
  2. JIVI [Suspect]
     Active Substance: DAMOCTOCOG ALFA PEGOL
     Indication: FACTOR VIII DEFICIENCY
     Dosage: 3000 U, ONCE, TREATMENT FOR BLEEDING IN THE RIGHT ELBOW
     Route: 042
     Dates: start: 20200702, end: 20200702
  3. JIVI [Suspect]
     Active Substance: DAMOCTOCOG ALFA PEGOL
     Indication: FACTOR VIII DEFICIENCY
     Dosage: 2000 U, ONCE, TREATMENT FOR BLEEDING IN THE RIGHT ELBOW
     Route: 042
     Dates: start: 20200704, end: 20200704
  4. LEKADOL [Concomitant]
     Active Substance: ACETAMINOPHEN
  5. JIVI [Suspect]
     Active Substance: DAMOCTOCOG ALFA PEGOL
     Indication: FACTOR VIII DEFICIENCY
     Dosage: 3000 U, ONCE, TREATMENT FOR BLEEDING IN THE RIGHT ELBOW
     Route: 042
     Dates: start: 20200702, end: 20200702
  6. JIVI [Suspect]
     Active Substance: DAMOCTOCOG ALFA PEGOL
     Indication: FACTOR VIII DEFICIENCY
     Dosage: 2000 U, ONCE, TREATMENT FOR BLEEDING IN THE RIGHT ELBOW
     Route: 042
     Dates: start: 20200703, end: 20200703
  7. ENALAPRIL [Concomitant]
     Active Substance: ENALAPRIL
     Dosage: 5 MG, OM
     Route: 048
  8. JIVI [Suspect]
     Active Substance: DAMOCTOCOG ALFA PEGOL
     Indication: FACTOR VIII DEFICIENCY
     Dosage: UNK; INRAVENOUS; FOR SWOLLEN RIGHT KNEE
     Route: 042
     Dates: start: 20200903, end: 20200903

REACTIONS (3)
  - Joint swelling [None]
  - Haemarthrosis [Recovered/Resolved]
  - Arthralgia [None]

NARRATIVE: CASE EVENT DATE: 20200630
